FAERS Safety Report 16076238 (Version 1)
Quarter: 2019Q1

REPORT INFORMATION
  Report Type: Spontaneous
  Country: US (occurrence: US)
  Receive Date: 20190213
  Receipt Date: 20190213
  Transmission Date: 20190418
  Serious: Yes (Other)
  Sender: FDA-Public Use
  Company Number: None

PATIENT
  Age: 66 Year
  Sex: Female

DRUGS (1)
  1. IMATINIB 400MG TAB (X30) [Suspect]
     Active Substance: IMATINIB
     Dates: start: 20180206

REACTIONS (5)
  - Economic problem [None]
  - Insurance issue [None]
  - Nausea [None]
  - Therapy cessation [None]
  - Muscle spasms [None]

NARRATIVE: CASE EVENT DATE: 20190213
